FAERS Safety Report 26102551 (Version 1)
Quarter: 2025Q4

REPORT INFORMATION
  Report Type: Spontaneous
  Country: CA (occurrence: CA)
  Receive Date: 20251128
  Receipt Date: 20251128
  Transmission Date: 20260118
  Serious: Yes (Hospitalization, Other)
  Sender: TEVA
  Company Number: CA-TEVA-VS-3397033

PATIENT
  Age: 50 Year
  Sex: Female

DRUGS (5)
  1. FLUCONAZOLE [Suspect]
     Active Substance: FLUCONAZOLE
     Indication: Gut fermentation syndrome
     Route: 048
  2. FLUCONAZOLE [Suspect]
     Active Substance: FLUCONAZOLE
     Indication: Gut fermentation syndrome
     Route: 048
  3. DEXLANSOPRAZOLE [Suspect]
     Active Substance: DEXLANSOPRAZOLE
     Indication: Gastrooesophageal reflux disease
     Dosage: DOSE FORM:CAPSULE, DELAYED RELEASE
     Route: 065
  4. CIPROFLOXACIN [Suspect]
     Active Substance: CIPROFLOXACIN
     Indication: Urinary tract infection
     Route: 065
  5. NITROFURANTOIN [Suspect]
     Active Substance: NITROFURANTOIN
     Indication: Urinary tract infection
     Route: 065

REACTIONS (4)
  - Alanine aminotransferase increased [Recovered/Resolved]
  - Gut fermentation syndrome [Recovered/Resolved]
  - Off label use [Recovered/Resolved]
  - Dysbiosis [Recovered/Resolved]
